FAERS Safety Report 4372886-0 (Version None)
Quarter: 2004Q2

REPORT INFORMATION
  Report Type: 
  Country: None (occurrence: None)
  Receive Date: 20040526
  Receipt Date: 20040521
  Transmission Date: 20050107
  Serious: Yes (Other)
  Sender: FDA-Public Use
  Company Number: 2004212491US

PATIENT
  Age: 25 Year
  Sex: Female

DRUGS (2)
  1. DEPO-PROVERA [Suspect]
     Dosage: SINGLE INJECTION; MOST RECENT INJECTION
     Dates: start: 20020101, end: 20020101
  2. DEPO-PROVERA [Suspect]
     Dosage: SINGLE INJECTION; MOST RECENT INJECTION
     Dates: start: 20040225, end: 20040225

REACTIONS (4)
  - DEPRESSION [None]
  - HYPOAESTHESIA [None]
  - MUSCLE TIGHTNESS [None]
  - SUICIDAL IDEATION [None]
